FAERS Safety Report 11550765 (Version 1)
Quarter: 2015Q3

REPORT INFORMATION
  Report Type: Spontaneous
  Country: US (occurrence: US)
  Receive Date: 20150903
  Receipt Date: 20150903
  Transmission Date: 20151125
  Serious: No
  Sender: FDA-Public Use
  Company Number: US-ELI_LILLY_AND_COMPANY-US201210010067

PATIENT
  Sex: Female

DRUGS (2)
  1. HUMALOG [Suspect]
     Active Substance: INSULIN LISPRO
     Indication: DIABETES MELLITUS
     Dosage: 8 U, TID
     Dates: start: 201209
  2. LEVEMIR [Concomitant]
     Active Substance: INSULIN DETEMIR
     Indication: HEPATIC CIRRHOSIS
     Dosage: UNK, QD
     Dates: start: 201209

REACTIONS (2)
  - Pruritus generalised [Unknown]
  - Injection site pain [Unknown]

NARRATIVE: CASE EVENT DATE: 201210
